FAERS Safety Report 5271513-8 (Version None)
Quarter: 2007Q1

REPORT INFORMATION
  Report Type: 
  Country: None (occurrence: None)
  Receive Date: 20070316
  Receipt Date: 20070312
  Transmission Date: 20070707
  Serious: Yes (Hospitalization)
  Sender: FDA-Public Use
  Company Number: SP01124

PATIENT
  Age: 18 Year
  Sex: Female
  Weight: 42.6381 kg

DRUGS (2)
  1. OSMOPREP [Suspect]
     Indication: COLONOSCOPY
     Dosage: ORAL
     Route: 048
     Dates: start: 20070104, end: 20070105
  2. PRILOSEC [Concomitant]

REACTIONS (11)
  - BLOOD CALCIUM DECREASED [None]
  - BLOOD MAGNESIUM DECREASED [None]
  - BLOOD PHOSPHORUS DECREASED [None]
  - DEHYDRATION [None]
  - HYPERVENTILATION [None]
  - HYPOAESTHESIA ORAL [None]
  - HYPOKALAEMIA [None]
  - HYPOVOLAEMIA [None]
  - NAUSEA [None]
  - UNEVALUABLE EVENT [None]
  - WHITE BLOOD CELL COUNT INCREASED [None]
